FAERS Safety Report 13870919 (Version 1)
Quarter: 2017Q3

REPORT INFORMATION
  Report Type: Report from Study
  Country: None (occurrence: US)
  Receive Date: 20170816
  Receipt Date: 20170816
  Transmission Date: 20171127
  Serious: Yes (Hospitalization)
  Sender: FDA-Public Use
  Company Number: US-ABBVIE-17K-163-1976948-00

PATIENT
  Age: 50 Year
  Sex: Female
  Weight: 86.26 kg

DRUGS (1)
  1. HUMIRA [Suspect]
     Active Substance: ADALIMUMAB
     Indication: RHEUMATOID ARTHRITIS
     Route: 058

REACTIONS (4)
  - Coma [Recovered/Resolved]
  - Lower limb fracture [Not Recovered/Not Resolved]
  - Thrombosis [Not Recovered/Not Resolved]
  - Fracture nonunion [Not Recovered/Not Resolved]

NARRATIVE: CASE EVENT DATE: 201612
